FAERS Safety Report 7008980-5 (Version None)
Quarter: 2010Q3

REPORT INFORMATION
  Report Type: 
  Country: None (occurrence: None)
  Receive Date: 20100921
  Receipt Date: 20100909
  Transmission Date: 20110219
  Serious: Yes (Hospitalization)
  Sender: FDA-Public Use
  Company Number: CRC-10-123

PATIENT
  Age: 69 Year
  Sex: Female
  Weight: 93.8 kg

DRUGS (3)
  1. METFORMIN HCL [Suspect]
     Indication: TYPE 2 DIABETES MELLITUS
     Dosage: 1500MG DAILY, ORAL
     Route: 048
     Dates: start: 20100315
  2. STUDY DRUG DUTOGLIPTIN [Suspect]
     Dosage: ORAL
     Route: 048
     Dates: start: 20100315
  3. GLIMEPIRIDE [Suspect]
     Indication: DIABETES MELLITUS
     Dosage: 4MG, ONCE DAILY, ORAL
     Route: 048
     Dates: start: 20100315

REACTIONS (2)
  - PAIN IN EXTREMITY [None]
  - VENOUS OCCLUSION [None]
